FAERS Safety Report 8865798 (Version 1)
Quarter: 2012Q4

REPORT INFORMATION
  Report Type: 
  Country: US (occurrence: US)
  Receive Date: 20121024
  Receipt Date: 20121024
  Transmission Date: 20130627
  Serious: Yes (Other)
  Sender: FDA-Public Use
  Company Number: US-AMGEN-USASP2012003951

PATIENT
  Age: 79 Year
  Sex: Female
  Weight: 68.48 kg

DRUGS (2)
  1. ENBREL [Suspect]
     Indication: RHEUMATOID ARTHRITIS
     Dosage: 50 mg, qwk
     Route: 058
     Dates: start: 20111101, end: 20111207
  2. ISONIAZID [Suspect]
     Indication: TUBERCULOSIS
     Dosage: 300 mg, qd
     Dates: start: 201109, end: 20111207

REACTIONS (2)
  - Mycobacterium tuberculosis complex test positive [Recovered/Resolved]
  - Hepatic enzyme increased [Recovered/Resolved]
